FAERS Safety Report 25612511 (Version 1)
Quarter: 2025Q3

REPORT INFORMATION
  Report Type: Spontaneous
  Country: US (occurrence: None)
  Receive Date: 20250726
  Receipt Date: 20250726
  Transmission Date: 20251020
  Serious: Yes (Hospitalization)
  Sender: FDA-CTU
  Company Number: None

PATIENT
  Sex: Male
  Weight: 114.2 kg

DRUGS (2)
  1. XELODA [Suspect]
     Active Substance: CAPECITABINE
  2. ELOXATIN [Suspect]
     Active Substance: OXALIPLATIN

REACTIONS (16)
  - Hyponatraemia [None]
  - Colitis [None]
  - Renal disorder [None]
  - Hypovolaemia [None]
  - Enterocolitis [None]
  - Acute kidney injury [None]
  - Intestinal ischaemia [None]
  - General physical health deterioration [None]
  - Shock [None]
  - Small intestinal obstruction [None]
  - Hypoxia [None]
  - Aspiration [None]
  - Abdominal distension [None]
  - Hypovolaemic shock [None]
  - Hepatic function abnormal [None]
  - Coagulopathy [None]

NARRATIVE: CASE EVENT DATE: 20250703
